FAERS Safety Report 6504320-6 (Version None)
Quarter: 2009Q4

REPORT INFORMATION
  Report Type: 
  Country: None (occurrence: None)
  Receive Date: 20091217
  Receipt Date: 20091208
  Transmission Date: 20100525
  Serious: Yes (Other)
  Sender: FDA-Public Use
  Company Number: PL-WATSON-2009-10512

PATIENT
  Age: 17 Year
  Sex: Male

DRUGS (2)
  1. PREDNISONE TAB [Suspect]
     Indication: ACUTE MYELOID LEUKAEMIA
     Dosage: UNK
  2. ASPARAGINASE [Suspect]
     Indication: ACUTE MYELOID LEUKAEMIA
     Dosage: 5000 UG/M2, UNK

REACTIONS (2)
  - CEREBRAL HAEMORRHAGE [None]
  - CEREBRAL ISCHAEMIA [None]
